FAERS Safety Report 23056964 (Version 1)
Quarter: 2023Q4

REPORT INFORMATION
  Report Type: Spontaneous
  Country: US (occurrence: US)
  Receive Date: 20231012
  Receipt Date: 20231012
  Transmission Date: 20240110
  Serious: No
  Sender: FDA-Public Use
  Company Number: US-SA-SAC20231006000203

PATIENT
  Age: 11 Year
  Sex: Male

DRUGS (2)
  1. ALPROLIX [Suspect]
     Active Substance: EFTRENONACOG ALFA
     Indication: Factor IX deficiency
     Dosage: 2000 U, QW
     Route: 042
     Dates: start: 202211
  2. ALPROLIX [Suspect]
     Active Substance: EFTRENONACOG ALFA
     Indication: Factor IX deficiency
     Dosage: 2000 U, QW
     Route: 042
     Dates: start: 202211

REACTIONS (1)
  - Lip haemorrhage [Unknown]

NARRATIVE: CASE EVENT DATE: 20230926
